FAERS Safety Report 5536588-7 (Version None)
Quarter: 2007Q4

REPORT INFORMATION
  Report Type: 
  Country: None (occurrence: None)
  Receive Date: 20071206
  Receipt Date: 20070913
  Transmission Date: 20080405
  Serious: Yes (Other)
  Sender: FDA-Public Use
  Company Number: US-AMGEN-KDL233318

PATIENT
  Sex: Female
  Weight: 95.8 kg

DRUGS (12)
  1. ENBREL [Suspect]
     Indication: PSORIATIC ARTHROPATHY
     Route: 058
     Dates: start: 20060501, end: 20070706
  2. AMITRIPTLINE HCL [Concomitant]
     Dates: start: 20050101
  3. CELEBREX [Concomitant]
     Dates: start: 20050701
  4. CLONAZEPAM [Concomitant]
     Dates: start: 20050101
  5. HYDROCHLOROTHIAZIDE [Concomitant]
     Dates: start: 19820101
  6. LISINOPRIL [Concomitant]
     Dates: start: 20060501
  7. GLUCOSAMINE W/CHONDROITIN SULFATES [Concomitant]
     Dates: start: 20070101
  8. POTASSIUM CHLORIDE [Concomitant]
     Dates: start: 20050701
  9. TYLENOL [Concomitant]
     Dates: start: 20070501
  10. VERAPAMIL [Concomitant]
     Dates: start: 20060501
  11. ZETIA [Concomitant]
     Dates: start: 20040501
  12. ATENOLOL [Concomitant]
     Dates: start: 19820101, end: 20060501

REACTIONS (1)
  - BREAST CANCER IN SITU [None]
